FAERS Safety Report 24132565 (Version 1)
Quarter: 2024Q3

REPORT INFORMATION
  Report Type: Report from Study
  Country: GB (occurrence: GB)
  Receive Date: 20240724
  Receipt Date: 20240724
  Transmission Date: 20241016
  Serious: Yes (Hospitalization)
  Sender: ELI LILLY AND CO
  Company Number: GB-ELI_LILLY_AND_COMPANY-GB202407009114

PATIENT
  Age: 55 Year
  Sex: Female

DRUGS (1)
  1. TALTZ [Suspect]
     Active Substance: IXEKIZUMAB
     Indication: Spinal osteoarthritis
     Dosage: 80 MG, OTHER (EVERY 28 DAYS)
     Route: 058
     Dates: start: 20230803

REACTIONS (2)
  - Oropharyngeal discomfort [Unknown]
  - Off label use [Unknown]
